FAERS Safety Report 9857538 (Version 5)
Quarter: 2014Q2

REPORT INFORMATION
  Report Type: Spontaneous
  Country: GB (occurrence: GB)
  Receive Date: 20140131
  Receipt Date: 20140505
  Transmission Date: 20141212
  Serious: Yes (Other)
  Sender: FDA-Public Use
  Company Number: PHFR2014GB000999

PATIENT
  Age: 52 Year
  Sex: Female
  Weight: 86.3 kg

DRUGS (8)
  1. CLOZARIL [Suspect]
     Dosage: UNK
     Route: 048
     Dates: start: 20140120
  2. CLOZARIL [Suspect]
     Dosage: 12.5 MG, BD
     Route: 048
     Dates: start: 20140123
  3. CLOZARIL [Suspect]
     Dosage: 25 MG, UNK
     Route: 048
     Dates: start: 20140124, end: 20140128
  4. TRUVADA [Concomitant]
     Indication: HIV INFECTION
     Dosage: 1 DF, DAILY
     Route: 048
  5. ATAZANAVIR [Concomitant]
     Indication: HIV INFECTION
     Dosage: 300 MG, DAILY
     Route: 048
  6. RITONAVIR [Concomitant]
     Indication: HIV INFECTION
     Dosage: 100 MG, DAILY
     Route: 048
  7. ARIPIPRAZOLE [Concomitant]
     Indication: HIV INFECTION
     Dosage: 20 MG,DAILY
     Route: 048
  8. ARIPIPRAZOLE [Concomitant]
     Indication: SCHIZOPHRENIA

REACTIONS (2)
  - Hypothermia [Recovered/Resolved]
  - Feeling cold [Recovered/Resolved]
